FAERS Safety Report 6231830-1 (Version None)
Quarter: 2009Q2

REPORT INFORMATION
  Report Type: 
  Country: None (occurrence: None)
  Receive Date: 20090616
  Receipt Date: 20090506
  Transmission Date: 20091009
  Serious: No
  Sender: FDA-Public Use
  Company Number: A0782770A

PATIENT
  Age: 50 Year
  Sex: Male

DRUGS (9)
  1. AVANDARYL [Suspect]
     Dosage: 2TAB PER DAY
     Route: 048
     Dates: start: 20090506
  2. MAXALT [Concomitant]
  3. ANTIBIOTIC [Concomitant]
  4. AMOXICILLIN [Concomitant]
  5. KLONOPIN [Concomitant]
  6. CYMBALTA [Concomitant]
  7. STATINS [Concomitant]
  8. HEART MEDICATION [Concomitant]
  9. UNSPECIFIED MEDICATIONS [Concomitant]

REACTIONS (1)
  - NAUSEA [None]
